FAERS Safety Report 9312273 (Version 1)
Quarter: 2013Q2

REPORT INFORMATION
  Report Type: Report from Study
  Country: US (occurrence: BW)
  Receive Date: 20130528
  Receipt Date: 20130528
  Transmission Date: 20140414
  Serious: Yes (Death, Hospitalization, Other)
  Sender: FDA-Public Use
  Company Number: BW-B.I. PHARMACEUTICALS,INC./RIDGEFIELD-2013-BI-14832GD

PATIENT
  Age: 33 Year
  Sex: Female

DRUGS (5)
  1. VIRAMUNE [Suspect]
     Indication: HIV INFECTION
  2. AZT [Suspect]
     Indication: HIV INFECTION
  3. 3TC [Suspect]
     Indication: HIV INFECTION
  4. AMPHOTERICIN B [Concomitant]
     Indication: CRYPTOCOCCOSIS
     Dosage: 0.7 MG/KG
  5. FLUCONAZOLE [Concomitant]
     Indication: CRYPTOCOCCOSIS
     Dosage: 400 MG
     Route: 048

REACTIONS (4)
  - Immune reconstitution inflammatory syndrome [Fatal]
  - VIth nerve paralysis [Unknown]
  - Headache [Unknown]
  - Vomiting [Unknown]
